FAERS Safety Report 4969072-X (Version None)
Quarter: 2006Q2

REPORT INFORMATION
  Report Type: 
  Country: None (occurrence: None)
  Receive Date: 20060411
  Receipt Date: 20060404
  Transmission Date: 20061013
  Serious: Yes (Other)
  Sender: FDA-Public Use
  Company Number: FR-BRISTOL-MYERS SQUIBB COMPANY-13337845

PATIENT

DRUGS (1)
  1. REYATAZ [Suspect]
     Route: 048

REACTIONS (1)
  - RENAL FAILURE [None]
